FAERS Safety Report 5820427-0 (Version None)
Quarter: 2008Q3

REPORT INFORMATION
  Report Type: 
  Country: None (occurrence: None)
  Receive Date: 20080724
  Receipt Date: 20070713
  Transmission Date: 20090109
  Serious: No
  Sender: FDA-Public Use
  Company Number: A0664975A

PATIENT
  Sex: Female

DRUGS (1)
  1. AVANDIA [Suspect]
     Indication: DRUG USE FOR UNKNOWN INDICATION
     Dates: start: 20070501

REACTIONS (3)
  - DYSPNOEA [None]
  - SWELLING [None]
  - WEIGHT INCREASED [None]
